FAERS Safety Report 9047316 (Version 1)
Quarter: 2013Q1

REPORT INFORMATION
  Report Type: Report from Study
  Country: US (occurrence: US)
  Receive Date: 20130131
  Receipt Date: 20130131
  Transmission Date: 20140127
  Serious: No
  Sender: FDA-Public Use
  Company Number: US-ABBOTT-12P-163-0979701-00

PATIENT
  Age: 72 Year
  Sex: Male

DRUGS (5)
  1. HUMIRA [Suspect]
     Indication: RHEUMATOID ARTHRITIS
  2. PANTOPRAZOLE [Concomitant]
     Indication: GASTROOESOPHAGEAL REFLUX DISEASE
     Dosage: 40MG DAILY
  3. SIMVASTATIN [Concomitant]
     Indication: BLOOD CHOLESTEROL INCREASED
     Dosage: 5MG DAILY
  4. CITALOPRAM [Concomitant]
     Indication: DEPRESSION
     Dosage: 10MG DAILY
  5. ADVIL [Concomitant]
     Indication: PAIN

REACTIONS (3)
  - Injection site pain [Not Recovered/Not Resolved]
  - Pneumonia [Recovered/Resolved]
  - Injection site bruising [Not Recovered/Not Resolved]
